FAERS Safety Report 5010756-5 (Version None)
Quarter: 2006Q2

REPORT INFORMATION
  Report Type: 
  Country: None (occurrence: None)
  Receive Date: 20060525
  Receipt Date: 20050609
  Transmission Date: 20061013
  Serious: Yes (Hospitalization)
  Sender: FDA-Public Use
  Company Number: AU-ROCHE-409070

PATIENT
  Age: 64 Year
  Sex: Male
  Weight: 86.6 kg

DRUGS (5)
  1. DACLIZUMAB (HYPM) [Suspect]
     Indication: DRUG USE FOR UNKNOWN INDICATION
     Route: 058
     Dates: start: 20050314, end: 20050314
  2. FLUCLOXACILLIN [Concomitant]
     Route: 042
     Dates: start: 20050520
  3. ACETYLSALICYLIC ACID SRT [Concomitant]
  4. PARACETAMOL [Concomitant]
     Indication: UPPER RESPIRATORY TRACT INFECTION
     Dates: start: 20050421
  5. PREDNISOLONE [Concomitant]
     Dates: start: 20050509, end: 20050516

REACTIONS (2)
  - DERMATITIS EXFOLIATIVE [None]
  - STAPHYLOCOCCAL BACTERAEMIA [None]
